FAERS Safety Report 18395952 (Version 2)
Quarter: 2020Q4

REPORT INFORMATION
  Report Type: Spontaneous
  Country: PT (occurrence: PT)
  Receive Date: 20201018
  Receipt Date: 20201231
  Transmission Date: 20210114
  Serious: Yes (Hospitalization, Other)
  Sender: FDA-Public Use
  Company Number: PT-009507513-2010PRT004593

PATIENT
  Age: 38 Year
  Sex: Female

DRUGS (5)
  1. ISENTRESS [Suspect]
     Active Substance: RALTEGRAVIR POTASSIUM
     Dosage: 400 MILLIGRAM, 2ID
     Route: 048
     Dates: start: 2016
  2. ISENTRESS [Suspect]
     Active Substance: RALTEGRAVIR POTASSIUM
     Dosage: 1200 MG ONCE DAILY (QD)
     Route: 048
     Dates: start: 2018
  3. EMTRICITABINE (+) TENOFOVIR [Concomitant]
     Active Substance: EMTRICITABINE\TENOFOVIR
  4. ISENTRESS [Suspect]
     Active Substance: RALTEGRAVIR POTASSIUM
     Dosage: 400 MILLIGRAM, 2ID
     Route: 048
     Dates: start: 2019
  5. ISENTRESS [Suspect]
     Active Substance: RALTEGRAVIR POTASSIUM
     Dosage: 400 MILLIGRAM, 2ID
     Route: 048
     Dates: start: 2020

REACTIONS (5)
  - Diarrhoea [Unknown]
  - Multiple organ dysfunction syndrome [Unknown]
  - Maternal exposure during pregnancy [Unknown]
  - Sepsis [Unknown]
  - Foetal death [Unknown]

NARRATIVE: CASE EVENT DATE: 202002
